FAERS Safety Report 10363796 (Version 1)
Quarter: 2014Q3

REPORT INFORMATION
  Report Type: Spontaneous
  Country: US (occurrence: None)
  Receive Date: 20140801
  Receipt Date: 20140801
  Transmission Date: 20150326
  Serious: Yes (Other)
  Sender: FDA-Public Use
  Company Number: 2373292

PATIENT
  Age: 60 Year
  Sex: Female
  Weight: 68.18 kg

DRUGS (3)
  1. DEPO-MEDROL [Suspect]
     Active Substance: METHYLPREDNISOLONE ACETATE
     Indication: ARTHRALGIA
     Route: 050
     Dates: start: 20121218
  2. MARCAINE [Suspect]
     Active Substance: BUPIVACAINE HYDROCHLORIDE
     Indication: ARTHRALGIA
     Route: 050
     Dates: start: 20121218
  3. LIDOCAINE HCL [Suspect]
     Active Substance: LIDOCAINE HYDROCHLORIDE
     Indication: ARTHRALGIA
     Route: 050
     Dates: start: 20121218

REACTIONS (3)
  - Peripheral swelling [None]
  - Injection site infection [None]
  - Pain [None]

NARRATIVE: CASE EVENT DATE: 20121218
